FAERS Safety Report 7504750-X (Version None)
Quarter: 2011Q2

REPORT INFORMATION
  Report Type: 
  Country: None (occurrence: None)
  Receive Date: 20110525
  Receipt Date: 20101207
  Transmission Date: 20111010
  Serious: No
  Sender: FDA-Public Use
  Company Number: US-AMGEN-USASP2010008425

PATIENT
  Sex: Male

DRUGS (1)
  1. ARANESP [Suspect]
     Indication: PRODUCT USED FOR UNKNOWN INDICATION
     Dates: start: 20101101

REACTIONS (8)
  - PAIN [None]
  - OEDEMA PERIPHERAL [None]
  - NASOPHARYNGITIS [None]
  - MYALGIA [None]
  - CHEST PAIN [None]
  - BLOOD CREATININE INCREASED [None]
  - ARTHRALGIA [None]
  - NAUSEA [None]
